FAERS Safety Report 17631221 (Version 2)
Quarter: 2020Q3

REPORT INFORMATION
  Report Type: Spontaneous
  Country: DE (occurrence: DE)
  Receive Date: 20200406
  Receipt Date: 20200721
  Transmission Date: 20201102
  Serious: Yes (Other)
  Sender: FDA-Public Use
  Company Number: DE-SA-2020SA082004

PATIENT

DRUGS (1)
  1. DUPIXENT [Suspect]
     Active Substance: DUPILUMAB
     Indication: DERMATITIS ATOPIC
     Dosage: 200 MG, QOW
     Route: 058
     Dates: start: 20180515

REACTIONS (8)
  - Gastrooesophageal reflux disease [Not Recovered/Not Resolved]
  - Musculoskeletal discomfort [Not Recovered/Not Resolved]
  - Joint stiffness [Not Recovered/Not Resolved]
  - Angioedema [Recovered/Resolved]
  - Erysipelas [Recovered/Resolved]
  - Product use issue [Unknown]
  - Paraesthesia [Not Recovered/Not Resolved]
  - Arthropod bite [Unknown]

NARRATIVE: CASE EVENT DATE: 20180515
